FAERS Safety Report 10571580 (Version 1)
Quarter: 2014Q4

REPORT INFORMATION
  Report Type: Spontaneous
  Country: US (occurrence: US)
  Receive Date: 20141107
  Receipt Date: 20141107
  Transmission Date: 20150529
  Serious: No
  Sender: FDA-Public Use
  Company Number: US-ABBVIE-14P-163-1221479-00

PATIENT

DRUGS (1)
  1. TRICOR [Suspect]
     Active Substance: FENOFIBRATE
     Indication: PRODUCT USED FOR UNKNOWN INDICATION
     Dates: start: 2011

REACTIONS (6)
  - Blood glucose abnormal [Unknown]
  - Hyperhidrosis [Unknown]
  - Malaise [Unknown]
  - Insomnia [Unknown]
  - Product physical issue [Unknown]
  - Feeling hot [Unknown]

NARRATIVE: CASE EVENT DATE: 20140401
